FAERS Safety Report 10422993 (Version 1)
Quarter: 2014Q3

REPORT INFORMATION
  Report Type: Report from Study
  Country: US (occurrence: US)
  Receive Date: 20140902
  Receipt Date: 20140902
  Transmission Date: 20150326
  Serious: No
  Sender: FDA-Public Use
  Company Number: US-009507513-1408USA017313

PATIENT
  Sex: Female
  Weight: 57.14 kg

DRUGS (1)
  1. IMPLANON [Suspect]
     Active Substance: ETONOGESTREL
     Dosage: UNK
     Route: 059
     Dates: start: 20131010, end: 20140829

REACTIONS (3)
  - Haemorrhage [Unknown]
  - Adverse event [Unknown]
  - Medical device removal [Unknown]

NARRATIVE: CASE EVENT DATE: 20140829
